FAERS Safety Report 10657995 (Version 2)
Quarter: 2014Q4

REPORT INFORMATION
  Report Type: Spontaneous
  Country: US (occurrence: US)
  Receive Date: 20141217
  Receipt Date: 20141217
  Transmission Date: 20150529
  Serious: No
  Sender: FDA-Public Use
  Company Number: US-GLAXOSMITHKLINE-A1058545A

PATIENT

DRUGS (6)
  1. WARFARIN [Concomitant]
     Active Substance: WARFARIN
  2. VOTRIENT [Suspect]
     Active Substance: PAZOPANIB HYDROCHLORIDE
     Indication: RENAL CANCER
     Dosage: 800 MG (4, 200 MG TABLETS)
     Route: 048
     Dates: start: 20131231
  3. CARVEDILOL. [Concomitant]
     Active Substance: CARVEDILOL
  4. FLONASE [Concomitant]
     Active Substance: FLUTICASONE PROPIONATE
  5. DIGOXIN. [Concomitant]
     Active Substance: DIGOXIN
  6. BENADRYL [Concomitant]
     Active Substance: DIPHENHYDRAMINE HYDROCHLORIDE

REACTIONS (4)
  - Headache [Unknown]
  - Diarrhoea [Unknown]
  - Arthralgia [Unknown]
  - Adverse drug reaction [Unknown]
